FAERS Safety Report 26158776 (Version 1)
Quarter: 2025Q4

REPORT INFORMATION
  Report Type: Spontaneous
  Country: JP (occurrence: JP)
  Receive Date: 20251215
  Receipt Date: 20251215
  Transmission Date: 20260117
  Serious: Yes (Death, Hospitalization)
  Sender: MERCK SHARP & DOHME LLC
  Company Number: JP-009507513-2343304

PATIENT
  Age: 8 Decade
  Sex: Male

DRUGS (1)
  1. KEYTRUDA [Suspect]
     Active Substance: PEMBROLIZUMAB
     Indication: Non-small cell lung cancer stage III
     Dosage: LAST ADMIN DATE: IN 2025.
     Route: 041
     Dates: start: 202507

REACTIONS (2)
  - Death [Fatal]
  - Immune-mediated lung disease [Unknown]

NARRATIVE: CASE EVENT DATE: 20250101
